FAERS Safety Report 8465217-8 (Version None)
Quarter: 2012Q2

REPORT INFORMATION
  Report Type: 
  Country: None (occurrence: None)
  Receive Date: 20120626
  Receipt Date: 20120620
  Transmission Date: 20120825
  Serious: Yes (Hospitalization, Other)
  Sender: FDA-Public Use
  Company Number: PHHY2011CA68501

PATIENT
  Sex: Male

DRUGS (1)
  1. SANDOSTATIN LAR [Suspect]
     Indication: NEUROENDOCRINE TUMOUR
     Dosage: 30 MG, EVERY 4 WEEKS
     Route: 030
     Dates: start: 20110628

REACTIONS (12)
  - FALL [None]
  - BLOOD GLUCOSE INCREASED [None]
  - JOINT SWELLING [None]
  - MOVEMENT DISORDER [None]
  - ASTHENIA [None]
  - OEDEMA PERIPHERAL [None]
  - MOOD SWINGS [None]
  - ROTATOR CUFF SYNDROME [None]
  - DRY MOUTH [None]
  - MALAISE [None]
  - ABDOMINAL PAIN LOWER [None]
  - SKIN FRAGILITY [None]
